FAERS Safety Report 10370266 (Version 1)
Quarter: 2014Q1

REPORT INFORMATION
  Report Type: Spontaneous
  Country: US (occurrence: None)
  Receive Date: 20140306
  Receipt Date: 20140306
  Transmission Date: 20141002
  Serious: Yes (Other)
  Sender: FDA-Public Use
  Company Number: 163-21880-13080592

PATIENT
  Age: 66 Year
  Sex: Female

DRUGS (7)
  1. REVLIMID [Suspect]
     Indication: 5Q MINUS SYNDROME
     Route: 048
     Dates: start: 20091221, end: 2010
  2. LISINOPRIL (UNKNOWN) [Concomitant]
  3. D3 (COLECALCIFEROL) (UNKNOWN) [Concomitant]
  4. MULTIVITAMINS (UNKNOWN) [Concomitant]
  5. B6 (PYRIDOXINE HYDROCHLORIDE) (UNKNOWN) [Concomitant]
  6. CALCIUM (UNKNOWN) [Concomitant]
  7. B12 (CYANOCOBALAMIN) (UNKNOWN) [Concomitant]

REACTIONS (4)
  - Platelet count decreased [None]
  - Haemoglobin decreased [None]
  - White blood cell count decreased [None]
  - Haematocrit decreased [None]
